FAERS Safety Report 9135441 (Version 2)
Quarter: 2013Q1

REPORT INFORMATION
  Report Type: Spontaneous
  Country: IL (occurrence: None)
  Receive Date: 20130206
  Receipt Date: 20130219
  Transmission Date: 20140127
  Serious: Yes (Death, Hospitalization)
  Sender: FDA-Public Use
  Company Number: 2013-0400

PATIENT
  Age: 74 Year
  Sex: Male

DRUGS (1)
  1. SOMATULINE AUTOGEL [Suspect]
     Indication: NEUROENDOCRINE TUMOUR
     Dosage: 30 MG (30 MG, 1 IN 2 WK)
     Dates: start: 201205, end: 20121113

REACTIONS (2)
  - Disease progression [None]
  - Neuroendocrine tumour [None]
